FAERS Safety Report 10154065 (Version 2)
Quarter: 2014Q2

REPORT INFORMATION
  Report Type: Report from Study
  Country: DE (occurrence: DE)
  Receive Date: 20140506
  Receipt Date: 20140506
  Transmission Date: 20141212
  Serious: Yes (Hospitalization)
  Sender: FDA-Public Use
  Company Number: DE-ROCHE-1212210

PATIENT
  Age: 46 Year
  Sex: Female
  Weight: 86 kg

DRUGS (4)
  1. BEVACIZUMAB [Suspect]
     Indication: BREAST CANCER METASTATIC
     Route: 042
     Dates: start: 20110201
  2. BEVACIZUMAB [Suspect]
     Route: 042
     Dates: start: 20100511
  3. BEVACIZUMAB [Suspect]
     Dosage: RESTARTED
     Route: 065
  4. PACLITAXEL [Concomitant]
     Indication: BREAST CANCER
     Route: 042
     Dates: start: 20100511, end: 20101116

REACTIONS (3)
  - Endocarditis [Recovered/Resolved]
  - Pyrexia [Recovered/Resolved]
  - Chills [Recovered/Resolved]
